FAERS Safety Report 4613520-1 (Version None)
Quarter: 2005Q1

REPORT INFORMATION
  Report Type: 
  Country: None (occurrence: None)
  Receive Date: 20050321
  Receipt Date: 20050309
  Transmission Date: 20050727
  Serious: Yes (Hospitalization)
  Sender: FDA-Public Use
  Company Number: ES-BRISTOL-MYERS SQUIBB COMPANY-12890653

PATIENT
  Age: 78 Year
  Sex: Male

DRUGS (4)
  1. KARVEA TABS 75 MG [Suspect]
     Indication: HYPERTENSIVE HEART DISEASE
     Route: 048
  2. ALDACTONE [Interacting]
     Indication: CARDIAC FAILURE CONGESTIVE
     Route: 048
     Dates: end: 20040924
  3. POTASION SOLUTION [Interacting]
     Indication: CARDIAC FAILURE CONGESTIVE
     Dosage: 1320 MG/5 ML
     Route: 048
  4. SEGURIL [Concomitant]
     Indication: CARDIAC FAILURE CONGESTIVE
     Route: 048

REACTIONS (3)
  - DRUG INTERACTION [None]
  - HYPERKALAEMIA [None]
  - RENAL FAILURE ACUTE [None]
